FAERS Safety Report 9520814 (Version 3)
Quarter: 2013Q4

REPORT INFORMATION
  Report Type: Report from Study
  Country: ME (occurrence: ME)
  Receive Date: 20130913
  Receipt Date: 20131007
  Transmission Date: 20140711
  Serious: Yes (Hospitalization)
  Sender: FDA-Public Use
  Company Number: ME-ROCHE-1271473

PATIENT
  Age: 56 Year
  Sex: Female
  Weight: 67 kg

DRUGS (11)
  1. METHOXY POLYETHYLENE GLYCOL-EPOETIN BETA [Suspect]
     Indication: NEPHROGENIC ANAEMIA
     Route: 058
     Dates: start: 20130805
  2. ASPIRIN [Suspect]
     Indication: PROPHYLAXIS
     Dosage: REPORTED AS: CARDIOPIRIN
     Route: 048
  3. MONOPRIL [Concomitant]
     Indication: HYPERTENSION
     Route: 048
  4. CONTROLOC [Concomitant]
     Route: 048
  5. EDEMID [Concomitant]
     Indication: NEPHROTIC SYNDROME
     Dosage: 1/4 EVERY SECOND DAY?AS REQURIED.
     Route: 048
  6. HEFEROL [Concomitant]
     Indication: ANAEMIA
     Dosage: 2X1
     Route: 048
  7. FOLAN [Concomitant]
     Indication: ANAEMIA
     Dosage: 2X1
     Route: 048
  8. LORAZEPAM [Concomitant]
     Route: 065
  9. SEROXAT [Concomitant]
     Route: 048
  10. PRONISON [Concomitant]
     Indication: NEPHROTIC SYNDROME
     Dosage: 40+20 MG (ONE PLUS HALF DOSAGE FORM PER DAY) AS REQUIRED.
     Route: 048
     Dates: start: 20130801
  11. PRONISON [Concomitant]
     Indication: PROTEINURIA
     Route: 042

REACTIONS (1)
  - Haematoma [Recovering/Resolving]
